FAERS Safety Report 23801011 (Version 1)
Quarter: 2024Q2

REPORT INFORMATION
  Report Type: Report from Study
  Country: US (occurrence: US)
  Receive Date: 20240430
  Receipt Date: 20240430
  Transmission Date: 20240716
  Serious: Yes (Hospitalization)
  Sender: FDA-Public Use
  Company Number: US-AKCEA THERAPEUTICS, INC.-2024IS003726

PATIENT

DRUGS (2)
  1. TEGSEDI [Suspect]
     Active Substance: INOTERSEN SODIUM
     Indication: Hereditary neuropathic amyloidosis
     Dosage: 284 MILLIGRAM, QW
     Route: 058
     Dates: start: 20190321
  2. BENADRYL [Concomitant]
     Active Substance: DIPHENHYDRAMINE HYDROCHLORIDE
     Indication: Product used for unknown indication
     Dosage: UNK
     Route: 065

REACTIONS (16)
  - Anaphylactic reaction [Unknown]
  - Dry throat [Unknown]
  - Lip swelling [Unknown]
  - Dysphagia [Unknown]
  - Swollen tongue [Unknown]
  - Mouth swelling [Unknown]
  - COVID-19 [Unknown]
  - Pharyngeal swelling [Unknown]
  - Exposure to unspecified agent [Unknown]
  - Taste disorder [Unknown]
  - Food allergy [Unknown]
  - Paraesthesia oral [Unknown]
  - Paraesthesia [Unknown]
  - Intentional product misuse [Unknown]
  - Drug hypersensitivity [Unknown]
  - Face oedema [Unknown]

NARRATIVE: CASE EVENT DATE: 20220906
